FAERS Safety Report 16513732 (Version 2)
Quarter: 2019Q3

REPORT INFORMATION
  Report Type: Spontaneous
  Country: GB (occurrence: GB)
  Receive Date: 20190701
  Receipt Date: 20190722
  Transmission Date: 20191004
  Serious: Yes (Death, Hospitalization, Other)
  Sender: FDA-Public Use
  Company Number: GB-GILEAD-2019-0415205

PATIENT
  Age: 49 Year
  Sex: Male

DRUGS (9)
  1. DEXAMETHASONE. [Concomitant]
     Active Substance: DEXAMETHASONE
  2. METHOTREXATE. [Concomitant]
     Active Substance: METHOTREXATE
  3. ACICLOVIR [Concomitant]
     Active Substance: ACYCLOVIR
  4. COTRIMOXAZOLE [Concomitant]
     Active Substance: SULFAMETHOXAZOLE\TRIMETHOPRIM
  5. RANITIDINE. [Concomitant]
     Active Substance: RANITIDINE
  6. YESCARTA [Suspect]
     Active Substance: AXICABTAGENE CILOLEUCEL
     Indication: DIFFUSE LARGE B-CELL LYMPHOMA
     Route: 042
  7. RITUXIMAB. [Concomitant]
     Active Substance: RITUXIMAB
  8. GEMCITABINE;OXALIPLATIN [Concomitant]
     Active Substance: GEMCITABINE HYDROCHLORIDE\OXALIPLATIN
  9. ARA CELL [Concomitant]
     Active Substance: CYTARABINE

REACTIONS (4)
  - Diplopia [Not Recovered/Not Resolved]
  - Death [Fatal]
  - Vascular device infection [Recovered/Resolved]
  - Cytokine release syndrome [Recovered/Resolved]

NARRATIVE: CASE EVENT DATE: 20190311
